FAERS Safety Report 8420792-4 (Version None)
Quarter: 2012Q2

REPORT INFORMATION
  Report Type: 
  Country: None (occurrence: None)
  Receive Date: 20120608
  Receipt Date: 20120604
  Transmission Date: 20120825
  Serious: Yes (Other)
  Sender: FDA-Public Use
  Company Number: US-PFIZER INC-2012134473

PATIENT
  Sex: Male
  Weight: 109 kg

DRUGS (14)
  1. NEURONTIN [Suspect]
     Indication: NEUROPATHY PERIPHERAL
     Dosage: UNK, 3X/DAY
     Route: 048
     Dates: start: 20120501
  2. DOCUSATE [Concomitant]
     Dosage: UNK
  3. PLAVIX [Concomitant]
     Dosage: 75 MG, UNK
  4. TAMSULOSIN [Concomitant]
     Dosage: 0.4 MG, 2X/DAY
  5. WELLBUTRIN [Concomitant]
     Dosage: 200 MG, 2X/DAY
  6. FINASTERIDE [Concomitant]
     Dosage: 5 MG, UNK
  7. CITALOPRAM [Concomitant]
     Dosage: 80 MG, UNK
  8. ALPRAZOLAM [Concomitant]
     Dosage: 1 MG, 3X/DAY
  9. NORVASC [Concomitant]
     Dosage: 5 MG, 2X/DAY
  10. ATENOLOL [Concomitant]
  11. NEXIUM [Concomitant]
     Dosage: 40 MG, UNK
  12. LIPITOR [Concomitant]
     Dosage: 40 MG, UNK
  13. NEURONTIN [Suspect]
     Indication: ANGINA PECTORIS
     Dosage: UNK
     Route: 048
  14. AMITRIPTYLINE [Concomitant]
     Dosage: 100 MG, 1X/DAY

REACTIONS (4)
  - MYOCARDIAL INFARCTION [None]
  - NEUROPATHY PERIPHERAL [None]
  - DRUG INEFFECTIVE [None]
  - BLOOD TESTOSTERONE DECREASED [None]
